FAERS Safety Report 20163560 (Version 1)
Quarter: 2021Q4

REPORT INFORMATION
  Report Type: Spontaneous
  Country: IT (occurrence: IT)
  Receive Date: 20211209
  Receipt Date: 20211209
  Transmission Date: 20220303
  Serious: Yes (Hospitalization, Other)
  Sender: FDA-Public Use
  Company Number: IT-MINISAL02-813392

PATIENT
  Age: 20 Year
  Sex: Female

DRUGS (3)
  1. ACETAMINOPHEN [Suspect]
     Active Substance: ACETAMINOPHEN
     Indication: Still^s disease
     Dosage: 5 GRAM, ONCE A DAY
     Route: 048
     Dates: start: 20181101, end: 20181214
  2. CIMZIA [Suspect]
     Active Substance: CERTOLIZUMAB PEGOL
     Indication: Still^s disease
     Dosage: 1 DOSAGE FORM, CYCLICAL
     Route: 058
     Dates: start: 20181216, end: 20190116
  3. PREDNISONE [Suspect]
     Active Substance: PREDNISONE
     Indication: Still^s disease
     Dosage: 15 MILLIGRAM, ONCE A DAY
     Route: 048
     Dates: start: 20181101, end: 20181216

REACTIONS (3)
  - Acute hepatic failure [Recovered/Resolved]
  - Hepatic encephalopathy [Recovered/Resolved]
  - Hepatitis acute [Recovered/Resolved]

NARRATIVE: CASE EVENT DATE: 20190123
